FAERS Safety Report 10211527 (Version 1)
Quarter: 2014Q2

REPORT INFORMATION
  Report Type: Spontaneous
  Country: HU (occurrence: None)
  Receive Date: 20140528
  Receipt Date: 20140528
  Transmission Date: 20141212
  Serious: Yes (Hospitalization)
  Sender: FDA-Public Use
  Company Number: NSR_01554_2014

PATIENT
  Age: 75 Year
  Sex: Male

DRUGS (2)
  1. ALLOPURINOL [Suspect]
     Indication: HYPERURICAEMIA
     Dosage: (300MG, 5 WEEKS UNTIL NOT CONTINUING)
  2. INDAPAMID [Suspect]
     Indication: PRODUCT USED FOR UNKNOWN INDICATION
     Dosage: (DF) (UNKNOWN)

REACTIONS (4)
  - Drug reaction with eosinophilia and systemic symptoms [None]
  - Dehydration [None]
  - Blood creatinine increased [None]
  - Alanine aminotransferase increased [None]
